FAERS Safety Report 4714652-X (Version None)
Quarter: 2005Q3

REPORT INFORMATION
  Report Type: 
  Country: None (occurrence: None)
  Receive Date: 20050715
  Receipt Date: 20050710
  Transmission Date: 20060218
  Serious: Yes (Death, Hospitalization)
  Sender: FDA-Public Use
  Company Number: 2005GB01346

PATIENT
  Age: 91 Year
  Sex: Female

DRUGS (2)
  1. SEROQUEL [Suspect]
     Route: 048
     Dates: end: 20041101
  2. SEROQUEL [Suspect]
     Route: 048
     Dates: start: 20050502

REACTIONS (2)
  - PNEUMONIA ASPIRATION [None]
  - TRANSIENT ISCHAEMIC ATTACK [None]
